FAERS Safety Report 5639440-1 (Version None)
Quarter: 2008Q1

REPORT INFORMATION
  Report Type: 
  Country: None (occurrence: None)
  Receive Date: 20080222
  Receipt Date: 20080214
  Transmission Date: 20080703
  Serious: Yes (Other)
  Sender: FDA-Public Use
  Company Number: 163-21880-08020941

PATIENT
  Age: 75 Year
  Sex: Male

DRUGS (1)
  1. REVLIMID(LENALIDOMIDE) (25 MILLIGRAM, CAPSULES) [Suspect]
     Indication: MULTIPLE MYELOMA
     Dosage: 25 MG, DAILY FOR 21 DAYS, ORAL
     Route: 048
     Dates: start: 20080130

REACTIONS (1)
  - PLEURISY [None]
